FAERS Safety Report 4626610-4 (Version None)
Quarter: 2005Q1

REPORT INFORMATION
  Report Type: 
  Country: None (occurrence: None)
  Receive Date: 20050330
  Receipt Date: 20050316
  Transmission Date: 20050727
  Serious: Yes (Hospitalization)
  Sender: FDA-Public Use
  Company Number: 202620

PATIENT
  Age: 55 Year
  Sex: Female

DRUGS (7)
  1. AVONEX [Suspect]
     Indication: MULTIPLE SCLEROSIS
     Dosage: 30 UG; QW; IM
     Route: 030
     Dates: start: 20030915
  2. BACLOFEN [Concomitant]
  3. CARTIA XT [Concomitant]
  4. LORAZEPAM [Concomitant]
  5. LASIX [Concomitant]
  6. DARVOCET [Concomitant]
  7. ALEVE [Concomitant]

REACTIONS (9)
  - BLOOD UREA INCREASED [None]
  - CONDITION AGGRAVATED [None]
  - FEELING ABNORMAL [None]
  - GAIT DISTURBANCE [None]
  - MOVEMENT DISORDER [None]
  - MULTIPLE SCLEROSIS [None]
  - NERVOUS SYSTEM DISORDER [None]
  - NERVOUSNESS [None]
  - NUCLEAR MAGNETIC RESONANCE IMAGING ABNORMAL [None]
